FAERS Safety Report 21474986 (Version 2)
Quarter: 2022Q4

REPORT INFORMATION
  Report Type: Spontaneous
  Country: US (occurrence: US)
  Receive Date: 20221019
  Receipt Date: 20221116
  Transmission Date: 20230113
  Serious: Yes (Hospitalization, Other)
  Sender: FDA-Public Use
  Company Number: US-SUN PHARMACEUTICAL INDUSTRIES LTD-2022R1-359278

PATIENT
  Sex: Male

DRUGS (1)
  1. CLOZARIL [Suspect]
     Active Substance: CLOZAPINE
     Indication: Aggression
     Dosage: 200 MILLIGRAM
     Route: 048
     Dates: start: 20220802

REACTIONS (4)
  - Intentional self-injury [Unknown]
  - Autism spectrum disorder [Unknown]
  - Disruptive mood dysregulation disorder [Unknown]
  - Drug intolerance [Unknown]
